FAERS Safety Report 8343044-X (Version None)
Quarter: 2012Q2

REPORT INFORMATION
  Report Type: 
  Country: None (occurrence: None)
  Receive Date: 20120508
  Receipt Date: 20120430
  Transmission Date: 20120825
  Serious: No
  Sender: FDA-Public Use
  Company Number: PHHY2012FR019701

PATIENT
  Sex: Female
  Weight: 21 kg

DRUGS (6)
  1. COLCHICINE [Interacting]
     Dosage: 0.5 MG, UNK
  2. ANTALGIC [Concomitant]
  3. ILARIS [Suspect]
     Indication: FAMILIAL MEDITERRANEAN FEVER
     Dosage: 45 MG, EVERY 6 WEEKS
     Route: 058
     Dates: start: 20110504
  4. COLCHICINE [Interacting]
     Dosage: 1 MG, UNK
  5. CODEINE PHOSPHATE [Concomitant]
  6. NSAID'S [Concomitant]

REACTIONS (5)
  - MUSCULAR WEAKNESS [None]
  - DRUG INTERACTION [None]
  - FALL [None]
  - BLOOD LACTATE DEHYDROGENASE INCREASED [None]
  - MYALGIA [None]
